FAERS Safety Report 8812260 (Version 1)
Quarter: 2012Q4

REPORT INFORMATION
  Report Type: 
  Country: US (occurrence: US)
  Receive Date: 20120927
  Receipt Date: 20120927
  Transmission Date: 20130627
  Serious: No
  Sender: FDA-Public Use
  Company Number: US-ASTRAZENECA-2010SE46352

PATIENT
  Age: 68 Year
  Sex: Female
  Weight: 72.6 kg

DRUGS (10)
  1. NEXIUM [Suspect]
     Indication: GASTROOESOPHAGEAL REFLUX DISEASE
     Route: 048
     Dates: start: 200612
  2. NEXIUM [Suspect]
     Indication: GASTROOESOPHAGEAL REFLUX DISEASE
     Route: 048
     Dates: start: 200612
  3. NEXIUM [Suspect]
     Indication: GASTROOESOPHAGEAL REFLUX DISEASE
     Route: 048
  4. NEXIUM [Suspect]
     Indication: GASTROOESOPHAGEAL REFLUX DISEASE
     Route: 048
  5. NEXIUM [Suspect]
     Indication: GASTROOESOPHAGEAL REFLUX DISEASE
     Route: 048
  6. NEXIUM [Suspect]
     Indication: GASTROOESOPHAGEAL REFLUX DISEASE
     Route: 048
  7. PRILOSEC [Suspect]
     Route: 048
  8. LIPITOR [Concomitant]
  9. LOTENSIN [Concomitant]
     Indication: BLOOD PRESSURE ABNORMAL
  10. BONIVA [Concomitant]

REACTIONS (6)
  - Gastric disorder [Not Recovered/Not Resolved]
  - Cystitis [Unknown]
  - Flatulence [Recovered/Resolved]
  - Eructation [Recovered/Resolved]
  - Drug dose omission [Unknown]
  - Drug ineffective [Unknown]
